FAERS Safety Report 21162737 (Version 2)
Quarter: 2022Q3

REPORT INFORMATION
  Report Type: Spontaneous
  Country: JP (occurrence: JP)
  Receive Date: 20220802
  Receipt Date: 20220908
  Transmission Date: 20221027
  Serious: Yes (Life-Threatening, Other)
  Sender: FDA-Public Use
  Company Number: JP-BRISTOL-MYERS SQUIBB COMPANY-2022-083113

PATIENT
  Age: 70 Year
  Sex: Male

DRUGS (6)
  1. VIDAZA [Suspect]
     Active Substance: AZACITIDINE
     Indication: Acute myeloid leukaemia
     Dosage: 75 MG/M2 (75 MG/M2/24 HOURS)
     Route: 042
     Dates: start: 20210922, end: 20210928
  2. VIDAZA [Suspect]
     Active Substance: AZACITIDINE
     Dosage: 75 MG/M2 (75 MG/M2/24 HOURS
     Route: 042
     Dates: start: 202110
  3. VENETOCLAX [Concomitant]
     Active Substance: VENETOCLAX
     Indication: Acute myeloid leukaemia
     Dates: start: 20210922, end: 2021
  4. VENETOCLAX [Concomitant]
     Active Substance: VENETOCLAX
     Dates: start: 202110
  5. METHYLPREDNISOLONE SODIUM SUCCINATE [Concomitant]
     Active Substance: METHYLPREDNISOLONE SODIUM SUCCINATE
     Indication: Product used for unknown indication
  6. PIPERACILLIN SODIUM\TAZOBACTAM SODIUM [Concomitant]
     Active Substance: PIPERACILLIN SODIUM\TAZOBACTAM SODIUM
     Indication: Product used for unknown indication

REACTIONS (1)
  - Segmental arterial mediolysis [Recovered/Resolved]

NARRATIVE: CASE EVENT DATE: 20210930
